FAERS Safety Report 18031631 (Version 2)
Quarter: 2022Q1

REPORT INFORMATION
  Report Type: Spontaneous
  Country: CH (occurrence: CH)
  Receive Date: 20200716
  Receipt Date: 20220202
  Transmission Date: 20220423
  Serious: Yes (Other)
  Sender: FDA-Public Use
  Company Number: CH-SM-2020-14453

PATIENT
  Sex: Female

DRUGS (2)
  1. DISULFIRAM [Suspect]
     Active Substance: DISULFIRAM
     Dosage: ABOUT 1 HOUR BEFORE TIME OF THE REPORT
     Route: 048
     Dates: start: 2012
  2. CHLORHEXIDINE GLUCONATE\LIDOCAINE HYDROCHLORIDE [Suspect]
     Active Substance: CHLORHEXIDINE GLUCONATE\LIDOCAINE HYDROCHLORIDE
     Indication: Pharyngitis
     Dosage: ABOUT 1.5 HOURS BEFORE TIME OF THE REPORT
     Route: 048

REACTIONS (2)
  - Tachycardia [Unknown]
  - Vertigo [Unknown]
